FAERS Safety Report 5169317-X (Version None)
Quarter: 2006Q4

REPORT INFORMATION
  Report Type: 
  Country: None (occurrence: None)
  Receive Date: 20061211
  Receipt Date: 20060724
  Transmission Date: 20070319
  Serious: Yes (Hospitalization)
  Sender: FDA-Public Use
  Company Number: JP-ELI_LILLY_AND_COMPANY-JP200607004684

PATIENT
  Age: 33 Year
  Sex: Male

DRUGS (10)
  1. OLANZAPINE [Suspect]
     Indication: SCHIZOPHRENIA, PARANOID TYPE
     Dosage: 5 MG, 2/D
     Route: 048
     Dates: start: 20060606, end: 20060608
  2. OLANZAPINE [Suspect]
     Dosage: 15 MG, DAILY (1/D)
     Route: 048
     Dates: start: 20060609, end: 20060612
  3. OLANZAPINE [Suspect]
     Dosage: 10 MG, 2/D
     Route: 048
     Dates: start: 20060613
  4. LINTON [Concomitant]
     Indication: SCHIZOPHRENIA, PARANOID TYPE
     Dosage: 5 MG, 2/D
     Route: 042
     Dates: start: 20060605, end: 20060605
  5. NITRAZEPAM [Concomitant]
     Indication: INSOMNIA
     Dosage: 10 MG, DAILY (1/D)
     Route: 048
     Dates: start: 20060609
  6. PROLMON [Concomitant]
     Indication: LIVER DISORDER
     Dosage: 60 MG, DAILY (1/D)
     Route: 048
     Dates: start: 20060613
  7. CONTOMIN [Concomitant]
     Indication: SCHIZOPHRENIA, PARANOID TYPE
     Dosage: 75 MG, DAILY (1/D)
     Route: 048
     Dates: start: 20060614, end: 20060615
  8. CONTOMIN [Concomitant]
     Dosage: 150 MG, DAILY (1/D)
     Route: 048
     Dates: start: 20060615, end: 20060619
  9. LEVOTOMIN [Concomitant]
     Dosage: 300 MG, DAILY (1/D)
     Route: 048
     Dates: start: 20060620, end: 20060621
  10. KEBERA S [Concomitant]
     Indication: LIVER DISORDER
     Route: 042

REACTIONS (2)
  - ILEUS [None]
  - PNEUMONIA ASPIRATION [None]
